FAERS Safety Report 26046632 (Version 1)
Quarter: 2025Q4

REPORT INFORMATION
  Report Type: Spontaneous
  Country: CN (occurrence: CN)
  Receive Date: 20251114
  Receipt Date: 20251114
  Transmission Date: 20260117
  Serious: Yes (Hospitalization)
  Sender: COHERUS
  Company Number: CN-SHANGHAI JUNSHI BIOSCIENCES CO., LTD.-CN2025016480

PATIENT

DRUGS (4)
  1. TORIPALIMAB [Suspect]
     Active Substance: TORIPALIMAB
     Indication: Small cell lung cancer metastatic
     Dosage: 240 MG, Q3W
     Route: 041
     Dates: start: 20250912, end: 20250912
  2. ETOPOSIDE [Suspect]
     Active Substance: ETOPOSIDE
     Indication: Small cell lung cancer metastatic
     Dosage: 170 MG, Q3W
     Route: 041
     Dates: start: 20250912, end: 20250914
  3. CISPLATIN [Suspect]
     Active Substance: CISPLATIN
     Indication: Small cell lung cancer metastatic
     Dosage: 50 MG, Q3W,D1
     Route: 041
     Dates: start: 20250912, end: 20250912
  4. CISPLATIN [Suspect]
     Active Substance: CISPLATIN
     Dosage: 40 MG, Q3W,D2-3
     Route: 041
     Dates: start: 20250913, end: 20250914

REACTIONS (1)
  - Myelosuppression [Unknown]

NARRATIVE: CASE EVENT DATE: 20250915
